FAERS Safety Report 18043673 (Version 1)
Quarter: 2020Q3

REPORT INFORMATION
  Report Type: Spontaneous
  Country: DE (occurrence: DE)
  Receive Date: 20200720
  Receipt Date: 20200720
  Transmission Date: 20201103
  Serious: Yes (Other)
  Sender: FDA-Public Use
  Company Number: DE-LUPIN PHARMACEUTICALS INC.-2020-03419

PATIENT
  Sex: Male

DRUGS (12)
  1. MONTELUKAST [Suspect]
     Active Substance: MONTELUKAST SODIUM
     Indication: OBLITERATIVE BRONCHIOLITIS
     Dosage: UNK
     Route: 048
  2. AZITHROMYCIN ANHYDROUS. [Suspect]
     Active Substance: AZITHROMYCIN ANHYDROUS
     Indication: OBLITERATIVE BRONCHIOLITIS
     Dosage: UNK
     Route: 048
  3. ACICLOVIR [Concomitant]
     Active Substance: ACYCLOVIR
     Indication: ANTIBIOTIC PROPHYLAXIS
     Dosage: 15 MILLIGRAM/KILOGRAM, QD (UNTIL DAY +200)
     Route: 065
  4. PENICILLIN NOS [Concomitant]
     Active Substance: PENICILLIN
     Indication: ANTIBIOTIC PROPHYLAXIS
     Dosage: UNK (25.0000 IE/KG UNTIL 2 YEARS POST AHSCT)
     Route: 065
  5. CO TRIMOXAZOL [Concomitant]
     Active Substance: SULFAMETHOXAZOLE\TRIMETHOPRIM
     Indication: ANTIBIOTIC PROPHYLAXIS
     Dosage: 5 MILLIGRAM/KILOGRAM (3 D/WK UNTIL DAY +200)
     Route: 065
  6. FLUTICASONE. [Concomitant]
     Active Substance: FLUTICASONE
     Indication: OBLITERATIVE BRONCHIOLITIS
     Dosage: UNK
     Route: 048
  7. MYCAMINE [Concomitant]
     Active Substance: MICAFUNGIN SODIUM
     Indication: ANTIBIOTIC PROPHYLAXIS
     Dosage: UNK (UNTIL T?CELLS STABLE }200/MCL)
     Route: 065
  8. INFANRIX HEXA [Concomitant]
     Active Substance: DIPHTHERIA AND TETANUS TOXOIDS AND ACELLULAR PERTUSSIS ADSORBED, INACTIVATED POLIOVIRUS AND HAEMOPHILUS B CONJUGATE AND HEPATITIS B VIRUS VACCINE
     Indication: IMMUNISATION
     Dosage: UNK
     Route: 065
  9. PREVNAR 13 [Concomitant]
     Active Substance: PNEUMOCOCCAL 13-VALENT CONJUGATE VACCINE
     Indication: IMMUNISATION
     Dosage: UNK
     Route: 065
  10. VORICONAZOL [Concomitant]
     Active Substance: VORICONAZOLE
     Indication: ANTIBIOTIC PROPHYLAXIS
     Dosage: UNK (UNTIL T?CELLS STABLE }200/MCL )
     Route: 065
  11. AMBISOME [Concomitant]
     Active Substance: AMPHOTERICIN B
     Indication: ANTIBIOTIC PROPHYLAXIS
     Dosage: UNK (UNTIL T?CELLS STABLE }200/MCL )
     Route: 065
  12. IGG [Concomitant]
     Active Substance: HUMAN IMMUNOGLOBULIN G
     Indication: PRODUCT USED FOR UNKNOWN INDICATION
     Dosage: UNK (IGG LEVELS { 600)
     Route: 065

REACTIONS (2)
  - Off label use [Unknown]
  - Drug ineffective for unapproved indication [Unknown]
